FAERS Safety Report 6050314-7 (Version None)
Quarter: 2009Q1

REPORT INFORMATION
  Report Type: 
  Country: None (occurrence: None)
  Receive Date: 20090126
  Receipt Date: 20090113
  Transmission Date: 20090719
  Serious: Yes (Hospitalization, Disabling)
  Sender: FDA-Public Use
  Company Number: FR-ROCHE-590804

PATIENT
  Sex: Male
  Weight: 54 kg

DRUGS (7)
  1. CELLCEPT [Suspect]
     Route: 065
     Dates: start: 20070917
  2. CELLCEPT [Suspect]
     Route: 065
  3. CELLCEPT [Suspect]
     Route: 065
     Dates: start: 20080101, end: 20081008
  4. CELLCEPT [Suspect]
     Dosage: DOSAGE: 250 MG X 2
     Route: 065
     Dates: start: 20081001
  5. CACIT D3 [Concomitant]
     Dosage: TDD: 1QD.
     Route: 048
  6. MAG 2 [Concomitant]
     Dosage: TDD: 3QD
     Route: 048
  7. PROGRAF [Concomitant]
     Route: 048

REACTIONS (3)
  - DIARRHOEA [None]
  - GENERAL PHYSICAL HEALTH DETERIORATION [None]
  - LYMPHOMA [None]
